FAERS Safety Report 5169462-9 (Version None)
Quarter: 2006Q4

REPORT INFORMATION
  Report Type: 
  Country: None (occurrence: None)
  Receive Date: 20061211
  Receipt Date: 20061201
  Transmission Date: 20070319
  Serious: Yes (Hospitalization)
  Sender: FDA-Public Use
  Company Number: FR-BOEHRINGER INGELHEIM PHARMACEUTICALS, INC.-2006-FF-01352FF

PATIENT
  Age: 70 Year
  Sex: Male

DRUGS (2)
  1. SPIRIVA [Suspect]
     Indication: DYSPNOEA
     Route: 055
  2. SPIRIVA [Suspect]
     Indication: BRONCHOSPASM

REACTIONS (3)
  - CARDIOPULMONARY FAILURE [None]
  - DRUG INEFFECTIVE [None]
  - OFF LABEL USE [None]
